FAERS Safety Report 7812974-7 (Version None)
Quarter: 2011Q4

REPORT INFORMATION
  Report Type: 
  Country: None (occurrence: None)
  Receive Date: 20111011
  Receipt Date: 20110929
  Transmission Date: 20120403
  Serious: Yes (Other)
  Sender: FDA-Public Use
  Company Number: DSA_47761_2011

PATIENT
  Age: 37 Year
  Sex: Female

DRUGS (2)
  1. DICLOFENAC SODIUM [Suspect]
     Indication: PRODUCT USED FOR UNKNOWN INDICATION
     Dosage: DF TOPICAL
     Route: 061
  2. DICLOFENAC SODIUM [Suspect]
     Indication: PRODUCT USED FOR UNKNOWN INDICATION
     Dosage: 50 MG, BID, ORAL
     Route: 048

REACTIONS (3)
  - TYPE IV HYPERSENSITIVITY REACTION [None]
  - DERMATITIS CONTACT [None]
  - JOINT INJURY [None]
